FAERS Safety Report 9066993 (Version 1)
Quarter: 2013Q1

REPORT INFORMATION
  Report Type: Report from Study
  Country: US (occurrence: US)
  Receive Date: 20130131
  Receipt Date: 20130131
  Transmission Date: 20140127
  Serious: No
  Sender: FDA-Public Use
  Company Number: US-ABBOTT-12P-163-0999117-00

PATIENT
  Age: 55 Year
  Sex: Female

DRUGS (2)
  1. HUMIRA [Suspect]
     Indication: PSORIATIC ARTHROPATHY
     Dates: start: 20121007
  2. UNKNOWN PAIN MEDICATION [Concomitant]
     Indication: PAIN

REACTIONS (3)
  - Incorrect storage of drug [Not Recovered/Not Resolved]
  - Malaise [Unknown]
  - Eye pain [Unknown]
